FAERS Safety Report 8472854-3 (Version None)
Quarter: 2012Q2

REPORT INFORMATION
  Report Type: 
  Country: None (occurrence: None)
  Receive Date: 20120627
  Receipt Date: 20120402
  Transmission Date: 20120825
  Serious: No
  Sender: FDA-Public Use
  Company Number: US-BAYER-2012-036711

PATIENT
  Age: 57 Year
  Sex: Male

DRUGS (2)
  1. ANTINEOPLASTIC AGENTS [Concomitant]
  2. LEUKINE [Suspect]
     Indication: UNEVALUABLE EVENT
     Dosage: UNK
     Dates: start: 20120626

REACTIONS (1)
  - FEELING COLD [None]
